FAERS Safety Report 6159065-1 (Version None)
Quarter: 2009Q2

REPORT INFORMATION
  Report Type: 
  Country: None (occurrence: None)
  Receive Date: 20090417
  Receipt Date: 20090407
  Transmission Date: 20091009
  Serious: Yes (Hospitalization)
  Sender: FDA-Public Use
  Company Number: US-ELI_LILLY_AND_COMPANY-US200901004689

PATIENT
  Age: 76 Year
  Sex: Female

DRUGS (12)
  1. FORTEO [Suspect]
     Indication: OSTEOPOROSIS
     Dosage: 20 UG, DAILY (1/D)
     Dates: start: 20080401, end: 20090101
  2. FORTEO [Suspect]
     Dosage: 20 UG, DAILY (1/D)
     Dates: start: 20090101
  3. PREDNISONE [Concomitant]
  4. ZITHROMYCIN [Concomitant]
  5. LIBRAX [Concomitant]
  6. SPIRIVA [Concomitant]
  7. PRILOSEC [Concomitant]
  8. ADVAIR HFA [Concomitant]
  9. CALCIUM [Concomitant]
  10. DIOVAN [Concomitant]
  11. ZOCOR [Concomitant]
  12. ATIVAN [Concomitant]

REACTIONS (2)
  - BRONCHITIS [None]
  - CHRONIC OBSTRUCTIVE PULMONARY DISEASE [None]
